FAERS Safety Report 24996331 (Version 1)
Quarter: 2025Q1

REPORT INFORMATION
  Report Type: Spontaneous
  Country: US (occurrence: US)
  Receive Date: 20250221
  Receipt Date: 20250221
  Transmission Date: 20250408
  Serious: No
  Sender: PFIZER
  Company Number: US-PFIZER INC-PV202200127492

PATIENT
  Age: 74 Year
  Sex: Female
  Weight: 85.28 kg

DRUGS (3)
  1. XELJANZ [Suspect]
     Active Substance: TOFACITINIB CITRATE
     Route: 048
  2. XELJANZ [Suspect]
     Active Substance: TOFACITINIB CITRATE
     Dosage: 10 MG, 1X/DAY, (TWO 5MG TABLETS ONCE A DAY)
     Route: 048
  3. TRULICITY [Concomitant]
     Active Substance: DULAGLUTIDE
     Indication: Diabetes mellitus
     Dosage: UNK, WEEKLY, (ONE SHOT, 3MG OR 3ML, NOT SURE OF THE DOSE. HAS BEEN TAKING FOR 9 OR 10 YEARS)

REACTIONS (5)
  - Pruritus [Unknown]
  - Rash pruritic [Unknown]
  - Drug hypersensitivity [Unknown]
  - Off label use [Unknown]
  - Intentional product misuse [Unknown]
